FAERS Safety Report 17433153 (Version 3)
Quarter: 2020Q2

REPORT INFORMATION
  Report Type: Report from Study
  Country: AT (occurrence: AT)
  Receive Date: 20200219
  Receipt Date: 20200422
  Transmission Date: 20200713
  Serious: No
  Sender: FDA-Public Use
  Company Number: AT-BRISTOL-MYERS SQUIBB COMPANY-BMS-2020-013021

PATIENT
  Age: 69 Year
  Sex: Male
  Weight: 74 kg

DRUGS (10)
  1. IBUPROFEN. [Concomitant]
     Active Substance: IBUPROFEN
     Indication: AUTOIMMUNE DISORDER
     Dosage: 400 MG, DAILY
     Route: 048
     Dates: start: 201804
  2. AZITHROMYCIN ANHYDROUS. [Concomitant]
     Active Substance: AZITHROMYCIN ANHYDROUS
     Indication: PRODUCT USED FOR UNKNOWN INDICATION
     Dosage: DAILY
     Route: 048
     Dates: start: 201805, end: 201805
  3. NIVOLUMAB [Suspect]
     Active Substance: NIVOLUMAB
     Indication: MALIGNANT MELANOMA
     Dosage: 213 UNITS NOS, EVERY 24 DAYS
     Route: 065
     Dates: start: 20180413, end: 20180413
  4. NIVOLUMAB [Suspect]
     Active Substance: NIVOLUMAB
     Indication: LUNG NEOPLASM MALIGNANT
     Dosage: 213 UNITS NOS, Q2W
     Route: 065
     Dates: start: 20180427, end: 20180427
  5. CONCOR [Concomitant]
     Active Substance: BISOPROLOL FUMARATE
     Indication: PRODUCT USED FOR UNKNOWN INDICATION
     Dosage: 5 MILLIGRAM, DAILY
     Route: 048
     Dates: start: 2013
  6. APREDNISLON [Concomitant]
     Active Substance: PREDNISOLONE
     Indication: PRODUCT USED FOR UNKNOWN INDICATION
     Dosage: 5 MILLIGRAM, QD
     Route: 048
     Dates: start: 2008, end: 20180511
  7. DRONABINOL. [Concomitant]
     Active Substance: DRONABINOL
     Indication: AUTOIMMUNE DISORDER
     Dosage: 3 GTT, DAILY
     Route: 048
     Dates: start: 201803
  8. AGLANDIN [Concomitant]
     Active Substance: TAMSULOSIN HYDROCHLORIDE
     Indication: PROPHYLAXIS
     Dosage: 4 MG, DAILY
     Route: 048
     Dates: start: 1900
  9. APREDNISLON [Concomitant]
     Active Substance: PREDNISOLONE
     Indication: AUTOIMMUNE DISORDER
     Dosage: 25 MILLIGRAM
     Route: 048
     Dates: start: 20080511
  10. BETAHISTIN [BETAHISTINE MESILATE] [Concomitant]
     Indication: PRODUCT USED FOR UNKNOWN INDICATION
     Dosage: DAILY
     Route: 048
     Dates: start: 201805, end: 201805

REACTIONS (3)
  - Off label use [Unknown]
  - Tinnitus [Unknown]
  - Ear pain [Unknown]

NARRATIVE: CASE EVENT DATE: 201805
